FAERS Safety Report 9570537 (Version 1)
Quarter: 2013Q3

REPORT INFORMATION
  Report Type: Spontaneous
  Country: US (occurrence: None)
  Receive Date: 20130926
  Receipt Date: 20130926
  Transmission Date: 20140515
  Serious: Yes (Other)
  Sender: FDA-Public Use
  Company Number: None

PATIENT
  Age: 26 Year
  Sex: Female
  Weight: 72.58 kg

DRUGS (1)
  1. MIRENA [Suspect]
     Indication: CONTRACEPTION
     Dates: start: 20120102, end: 20121102

REACTIONS (12)
  - Panic attack [None]
  - Anxiety [None]
  - Depression [None]
  - Mood altered [None]
  - Acne [None]
  - Scar [None]
  - Hair growth abnormal [None]
  - Alopecia [None]
  - Anxiety [None]
  - Feeling abnormal [None]
  - Emotional distress [None]
  - Emotional disorder [None]
